FAERS Safety Report 7859001 (Version 3)
Quarter: 2013Q1

REPORT INFORMATION
  Report Type: Spontaneous
  Country: JP (occurrence: None)
  Receive Date: 20110222
  Receipt Date: 20130116
  Transmission Date: 20140127
  Serious: Yes (Other)
  Sender: FDA-Public Use
  Company Number: JP-2011-10195

PATIENT
  Age: 44 Year
  Sex: Male
  Weight: 50 kg

DRUGS (14)
  1. SAMSCA [Suspect]
     Indication: CARDIAC FAILURE
     Route: 048
     Dates: start: 20110125, end: 20110131
  2. LASIX [Suspect]
     Indication: CARDIAC FAILURE
     Route: 048
  3. BEPRICOR (BEPRIDIL HYDROCHLORIDE) [Concomitant]
  4. DIOVAN [Concomitant]
  5. MEXITIL [Concomitant]
  6. TAGAMET [Concomitant]
  7. MUCOSTA (REBAMIPIDE) [Concomitant]
  8. ARTIST (CARVEDILOL) [Concomitant]
  9. PRIMOBENDAN (PIMOBENDEN) [Concomitant]
  10. WARFARIN (WARFARIN POTASSIUM) [Concomitant]
  11. SELARA (EPLERENONE) [Concomitant]
  12. LOXONIN (LOXOPROFEN) [Concomitant]
  13. DEPAS (ETIZOLAM) [Concomitant]
  14. MUCODYNE (CARBOCISTEINE) [Concomitant]

REACTIONS (6)
  - Renal impairment [None]
  - Dehydration [None]
  - Diarrhoea [None]
  - Abdominal pain [None]
  - Hyponatraemia [None]
  - Cardiovascular disorder [None]
